FAERS Safety Report 15895804 (Version 2)
Quarter: 2019Q1

REPORT INFORMATION
  Report Type: Spontaneous
  Country: US (occurrence: US)
  Receive Date: 20190131
  Receipt Date: 20190201
  Transmission Date: 20190417
  Serious: No
  Sender: FDA-Public Use
  Company Number: US-BAYER-2019-022998

PATIENT
  Age: 2 Year
  Sex: Female

DRUGS (2)
  1. CLARITIN [Suspect]
     Active Substance: LORATADINE
     Dosage: 4 DF
     Route: 048
     Dates: start: 20190130, end: 20190130
  2. MULTIVITAMINUM [Concomitant]

REACTIONS (2)
  - Accidental exposure to product by child [Recovered/Resolved]
  - Expired product administered [None]

NARRATIVE: CASE EVENT DATE: 20190130
